FAERS Safety Report 17387729 (Version 1)
Quarter: 2020Q1

REPORT INFORMATION
  Report Type: Spontaneous
  Country: US (occurrence: US)
  Receive Date: 20200206
  Receipt Date: 20200206
  Transmission Date: 20200409
  Serious: No
  Sender: FDA-Public Use
  Company Number: US-RADIUS HEALTH INC.-2020US000042

PATIENT
  Sex: Female

DRUGS (1)
  1. TYMLOS [Suspect]
     Active Substance: ABALOPARATIDE
     Indication: OSTEOPOROSIS POSTMENOPAUSAL
     Dosage: 80 MCG, QD
     Route: 058
     Dates: start: 20191212

REACTIONS (8)
  - Headache [Unknown]
  - Heart rate increased [Unknown]
  - Dizziness [Unknown]
  - Abdominal pain upper [Unknown]
  - Fatigue [Unknown]
  - Bone pain [Unknown]
  - Constipation [Unknown]
  - Nausea [Unknown]
